FAERS Safety Report 5215328-5 (Version None)
Quarter: 2007Q1

REPORT INFORMATION
  Report Type: 
  Country: None (occurrence: None)
  Receive Date: 20070116
  Receipt Date: 20070109
  Transmission Date: 20070707
  Serious: Yes (Life-Threatening, Hospitalization)
  Sender: FDA-Public Use
  Company Number: 2007-00059

PATIENT
  Age: 80 Year
  Sex: Female

DRUGS (2)
  1. VELCADE [Suspect]
     Indication: MULTIPLE MYELOMA
     Dosage: INTRAVENOUS
     Route: 042
     Dates: start: 20060101, end: 20070101
  2. DEXAMETHASONE [Concomitant]

REACTIONS (4)
  - COMA [None]
  - HYPERNATRAEMIA [None]
  - PNEUMONIA [None]
  - RESPIRATORY ALKALOSIS [None]
